FAERS Safety Report 5519734-0 (Version None)
Quarter: 2007Q4

REPORT INFORMATION
  Report Type: 
  Country: None (occurrence: None)
  Receive Date: 20071116
  Receipt Date: 20070727
  Transmission Date: 20080405
  Serious: No
  Sender: FDA-Public Use
  Company Number: A0666745A

PATIENT
  Sex: Female

DRUGS (2)
  1. COREG CR [Suspect]
     Dosage: 40MG PER DAY
     Route: 048
     Dates: start: 20070723
  2. LASIX [Concomitant]

REACTIONS (1)
  - DYSGEUSIA [None]
